FAERS Safety Report 4946470-1 (Version None)
Quarter: 2006Q1

REPORT INFORMATION
  Report Type: 
  Country: None (occurrence: None)
  Receive Date: 20060317
  Receipt Date: 20051024
  Transmission Date: 20060701
  Serious: Yes (Other)
  Sender: FDA-Public Use
  Company Number: PHEH2005US11811

PATIENT
  Age: 82 Year
  Sex: Female

DRUGS (2)
  1. ZOMETA [Suspect]
     Indication: BREAST CANCER
     Dosage: 4 MG, QMO
     Route: 042
     Dates: start: 20040301, end: 20050509
  2. FEMARA [Concomitant]
     Indication: BREAST CANCER
     Dosage: 2.5 MG, UNK
     Dates: start: 20050301

REACTIONS (5)
  - DENTAL TREATMENT [None]
  - EATING DISORDER [None]
  - ORAL INTAKE REDUCED [None]
  - OSTEONECROSIS [None]
  - PAIN [None]
